FAERS Safety Report 12506220 (Version 2)
Quarter: 2016Q3

REPORT INFORMATION
  Report Type: Spontaneous
  Country: US (occurrence: US)
  Receive Date: 20160628
  Receipt Date: 20160726
  Transmission Date: 20161109
  Serious: No
  Sender: FDA-Public Use
  Company Number: US-009507513-1606USA011911

PATIENT
  Age: 20 Year
  Sex: Female
  Weight: 52.15 kg

DRUGS (4)
  1. NUVARING [Concomitant]
     Active Substance: ETHINYL ESTRADIOL\ETONOGESTREL
     Route: 067
  2. LEXAPRO [Concomitant]
     Active Substance: ESCITALOPRAM OXALATE
  3. XANAX [Concomitant]
     Active Substance: ALPRAZOLAM
     Dosage: 0.5 UNK, UNK
  4. NEXPLANON [Suspect]
     Active Substance: ETONOGESTREL
     Indication: CONTRACEPTION
     Dosage: 1 DF, EVERY 3 YEARS
     Route: 059
     Dates: start: 20160621

REACTIONS (1)
  - Discomfort [Unknown]

NARRATIVE: CASE EVENT DATE: 20160621
